FAERS Safety Report 5119930-0 (Version None)
Quarter: 2006Q4

REPORT INFORMATION
  Report Type: 
  Country: None (occurrence: None)
  Receive Date: 20061003
  Receipt Date: 20060918
  Transmission Date: 20070319
  Serious: Yes (Hospitalization)
  Sender: FDA-Public Use
  Company Number: AT-MERCK-0609AUT00015

PATIENT
  Sex: Female

DRUGS (2)
  1. CASPOFUNGIN ACETATE [Suspect]
     Indication: CANDIDIASIS
     Route: 051
     Dates: start: 20060901
  2. FLUCONAZOLE [Concomitant]
     Indication: CANDIDIASIS
     Route: 065
     Dates: start: 20060830, end: 20060901

REACTIONS (1)
  - DRUG RESISTANCE [None]
